FAERS Safety Report 13824405 (Version 1)
Quarter: 2017Q3

REPORT INFORMATION
  Report Type: Spontaneous
  Country: DK (occurrence: DK)
  Receive Date: 20170802
  Receipt Date: 20170802
  Transmission Date: 20171127
  Serious: Yes (Hospitalization, Other)
  Sender: FDA-Public Use
  Company Number: DK-GLAXOSMITHKLINE-DK2017GSK114354

PATIENT
  Age: 61 Year
  Sex: Female

DRUGS (5)
  1. PREDNISOLONE. [Suspect]
     Active Substance: PREDNISOLONE
     Indication: HEADACHE
  2. METHOTREXATE. [Suspect]
     Active Substance: METHOTREXATE
     Indication: LICHEN PLANUS
     Dosage: UNK
     Dates: start: 201405
  3. NEOTIGASON [Suspect]
     Active Substance: ACITRETIN
     Indication: LICHEN PLANUS
     Dosage: 25 MG, 1D
     Dates: start: 20150722
  4. NEOTIGASON [Suspect]
     Active Substance: ACITRETIN
     Dosage: UNK
     Dates: start: 201405
  5. PREDNISOLONE. [Suspect]
     Active Substance: PREDNISOLONE
     Indication: LICHEN PLANUS
     Dosage: UNK
     Dates: start: 201405

REACTIONS (11)
  - Peripheral sensory neuropathy [Unknown]
  - Drug ineffective [Unknown]
  - Eye disorder [Unknown]
  - Paraesthesia [Unknown]
  - Skin disorder [Unknown]
  - Peripheral motor neuropathy [Unknown]
  - Arthropathy [Unknown]
  - Headache [Unknown]
  - Bone disorder [Unknown]
  - Mucous membrane disorder [Unknown]
  - Muscle disorder [Unknown]

NARRATIVE: CASE EVENT DATE: 201405
